FAERS Safety Report 9530948 (Version 2)
Quarter: 2013Q4

REPORT INFORMATION
  Report Type: Spontaneous
  Country: FR (occurrence: FR)
  Receive Date: 20130918
  Receipt Date: 20131003
  Transmission Date: 20140711
  Serious: Yes (Other)
  Sender: FDA-Public Use
  Company Number: FR-JNJFOC-20130909654

PATIENT
  Age: 85 Year
  Sex: Female

DRUGS (7)
  1. XARELTO [Suspect]
     Indication: ATRIAL FIBRILLATION
     Route: 048
     Dates: start: 20120925, end: 20121212
  2. XARELTO [Suspect]
     Indication: CEREBROVASCULAR ACCIDENT PROPHYLAXIS
     Route: 048
     Dates: start: 20120925, end: 20121212
  3. KARDEGIC [Concomitant]
     Route: 065
     Dates: start: 20120906, end: 20130204
  4. AMIODARONE [Concomitant]
     Route: 065
     Dates: start: 20120906, end: 20130204
  5. FUROSEMIDE [Concomitant]
     Route: 065
     Dates: start: 20120906, end: 20130204
  6. DIFFU K [Concomitant]
     Route: 065
     Dates: start: 20120906, end: 20130204
  7. ALDACTONE A [Concomitant]
     Route: 065
     Dates: start: 20120906, end: 20130204

REACTIONS (1)
  - Renal failure [Unknown]
